FAERS Safety Report 7261976-0 (Version None)
Quarter: 2011Q1

REPORT INFORMATION
  Report Type: 
  Country: None (occurrence: None)
  Receive Date: 20110130
  Receipt Date: 20101213
  Transmission Date: 20110831
  Serious: No
  Sender: FDA-Public Use
  Company Number: US-ABBOTT-10P-163-0691276-00

PATIENT
  Age: 39 Year
  Sex: Female

DRUGS (5)
  1. UNKNOWN MEDICATION [Concomitant]
     Indication: HYPERTENSION
  2. UNKNOWN MEDICATION [Concomitant]
     Indication: PSORIASIS
  3. HUMIRA [Suspect]
     Indication: PSORIASIS
     Dates: start: 20100901
  4. UNKNOWN MEDICATION [Concomitant]
     Indication: BLOOD CHOLESTEROL INCREASED
  5. DERMASMOOTH [Concomitant]
     Indication: PSORIASIS

REACTIONS (3)
  - LYMPHADENOPATHY [None]
  - PSORIASIS [None]
  - DRUG INEFFECTIVE [None]
